FAERS Safety Report 7295264-3 (Version None)
Quarter: 2011Q1

REPORT INFORMATION
  Report Type: 
  Country: None (occurrence: None)
  Receive Date: 20110211
  Receipt Date: 20110211
  Transmission Date: 20110831
  Serious: Yes (Life-Threatening, Hospitalization)
  Sender: FDA-Public Use
  Company Number: None

PATIENT
  Age: 50 Year
  Sex: Female
  Weight: 45.3597 kg

DRUGS (1)
  1. PENTASA 500 MG SHIRE US INC [Suspect]
     Indication: COLITIS ULCERATIVE
     Dosage: 3 CAPSULES TWICE A DAY PO
     Route: 048
     Dates: start: 20100208, end: 20101001

REACTIONS (1)
  - HAEMORRHAGIC STROKE [None]
